FAERS Safety Report 16094939 (Version 5)
Quarter: 2022Q1

REPORT INFORMATION
  Report Type: Spontaneous
  Country: US (occurrence: US)
  Receive Date: 20190320
  Receipt Date: 20220118
  Transmission Date: 20220424
  Serious: No
  Sender: FDA-Public Use
  Company Number: US-PFIZER INC-2019123110

PATIENT
  Age: 71 Year
  Sex: Female

DRUGS (34)
  1. EUCRISA [Suspect]
     Active Substance: CRISABOROLE
     Indication: Eczema
     Dosage: UNK, 2X/DAY (APPLY 1 INCH)
     Route: 061
     Dates: start: 20180405
  2. EUCRISA [Suspect]
     Active Substance: CRISABOROLE
     Indication: Dermatitis
  3. ACETAMINOPHEN [Concomitant]
     Active Substance: ACETAMINOPHEN
     Dosage: 325 MG, 1X/DAY (IN THE EVENING)
  4. ACETAMINOPHEN\HYDROCODONE [Concomitant]
     Active Substance: ACETAMINOPHEN\HYDROCODONE
     Dosage: 1 DF, 4X/DAY
     Route: 048
     Dates: start: 20151229
  5. ALLEGRA ALLERGY [Concomitant]
     Active Substance: FEXOFENADINE HYDROCHLORIDE
     Dosage: 180 MG, UNK
     Route: 048
     Dates: start: 20190219
  6. ANORO ELLIPTA [Concomitant]
     Active Substance: UMECLIDINIUM BROMIDE\VILANTEROL TRIFENATATE
     Dosage: 1 DF, DAILY (62.5 TO 25 MCG/INHALATION)
     Route: 055
     Dates: start: 20180220
  7. ASPIRIN [Concomitant]
     Active Substance: ASPIRIN
     Dosage: 81 MG, UNK
  8. BIOTIN [Concomitant]
     Active Substance: BIOTIN
     Dosage: 5 MG, DAILY
     Route: 048
  9. BIOTIN [Concomitant]
     Active Substance: BIOTIN
     Dosage: 6000 MG, DAILY
     Route: 048
  10. MINERALS\VITAMINS [Concomitant]
     Active Substance: MINERALS\VITAMINS
     Dosage: UNK
  11. CITRACAL [CALCIUM CITRATE;COLECALCIFEROL] [Concomitant]
     Dosage: UNK, UNK (200 TO 250 MG UNIT)
     Route: 048
  12. CYCLOBENZAPRINE HYDROCHLORIDE [Concomitant]
     Active Substance: CYCLOBENZAPRINE HYDROCHLORIDE
     Dosage: 20 MG, AS NEEDED (1 TABLET BY MOUTH TWO TIMES A DAY AS NEEDED)
     Route: 048
     Dates: start: 20150804
  13. DULOXETINE HYDROCHLORIDE [Concomitant]
     Active Substance: DULOXETINE HYDROCHLORIDE
     Dosage: 60 MG, DAILY
     Route: 048
     Dates: start: 20150209
  14. FIBER [Concomitant]
     Active Substance: PSYLLIUM HUSK
     Dosage: 1250 MG, 1X/DAY (2 EVERY MORNING)
     Route: 048
  15. HERBALS\LINSEED OIL [Concomitant]
     Active Substance: HERBALS\LINSEED OIL
     Dosage: 2000 MG, 1X/DAY
     Route: 048
  16. VITAMIN D [Concomitant]
     Active Substance: VITAMIN D NOS
     Indication: Vitamin D deficiency
     Dosage: 3000 IU, DAILY
  17. LOSARTAN POTASSIUM [Concomitant]
     Active Substance: LOSARTAN POTASSIUM
     Dosage: 25 MG, DAILY
     Route: 048
     Dates: start: 20180405
  18. MAGNESIUM OXIDE [Concomitant]
     Active Substance: MAGNESIUM OXIDE
     Dosage: 250 MG, UNK, (USE AS DIRECTED)
     Route: 048
  19. KRILL OIL [Concomitant]
     Active Substance: DIETARY SUPPLEMENT\KRILL OIL
     Dosage: 1 DF, 2X/DAY (1 CAPSULE TWICE DAILY)
  20. METOPROLOL SUCCINATE [Concomitant]
     Active Substance: METOPROLOL SUCCINATE
     Dosage: 25 MG, 1X/DAY
     Route: 048
  21. MIRALAX [Concomitant]
     Active Substance: POLYETHYLENE GLYCOL 3350
     Dosage: UNK
     Route: 048
  22. NAPROSYN [Concomitant]
     Active Substance: NAPROXEN
     Dosage: 500 MG, AS NEEDED (1 TABLET EVERY 12 HOUR)
     Route: 048
  23. PLAVIX [Concomitant]
     Active Substance: CLOPIDOGREL BISULFATE
     Dosage: 75 MG, DAILY
     Route: 048
  24. PRALUENT [Concomitant]
     Active Substance: ALIROCUMAB
     Dosage: 75 MG, UNK (EVERY 2 WEEKS)
     Route: 058
     Dates: start: 20190102
  25. PROAIR HFA [Concomitant]
     Active Substance: ALBUTEROL SULFATE
     Dosage: UNK, AS NEEDED (1 TO 2 PUFFS EVERY 4 TO 6 HOURS AS NEEDED)
     Route: 055
     Dates: start: 20150903
  26. PROBIOTICS NOS [Concomitant]
     Active Substance: PROBIOTICS NOS
     Dosage: UNK, UNK (TAKE AS DIRECTED)
  27. TESTOSTERONE CYPIONATE [Concomitant]
     Active Substance: TESTOSTERONE CYPIONATE
     Dosage: 0.2 ML, UNK
     Route: 030
     Dates: start: 20190409
  28. TRELEGY ELLIPTA [Concomitant]
     Active Substance: FLUTICASONE FUROATE\UMECLIDINIUM BROMIDE\VILANTEROL TRIFENATATE
     Dosage: UNK, UNK (100 TO 62.5 TO 25 MCG)
     Route: 055
     Dates: start: 20180405
  29. HERBALS\TURMERIC [Concomitant]
     Active Substance: HERBALS\TURMERIC
     Dosage: UNK
     Route: 048
  30. TYLENOL 8HR [Concomitant]
     Active Substance: ACETAMINOPHEN
     Dosage: UNK, AS NEEDED (1 TO 2 TABLETS EVERY 4 HOURS AS NEEDED)
     Route: 048
  31. VITAMIN B COMPLEX COX [Concomitant]
     Dosage: UNK
  32. VITAMIN D NOS [Concomitant]
     Active Substance: VITAMIN D NOS
     Dosage: 2000 IU, DAILY
  33. VITAMIN E [Concomitant]
     Active Substance: .ALPHA.-TOCOPHEROL
     Dosage: 1000 IU, UNK
     Route: 048
  34. ZINC SULFATE [Concomitant]
     Active Substance: ZINC SULFATE
     Dosage: 220 MG, ALTERNATE DAY
     Route: 048

REACTIONS (3)
  - Application site pain [Unknown]
  - Application site pruritus [Unknown]
  - Application site pain [Unknown]
